FAERS Safety Report 8558989-5 (Version None)
Quarter: 2012Q3

REPORT INFORMATION
  Report Type: 
  Country: None (occurrence: None)
  Receive Date: 20120802
  Receipt Date: 20120723
  Transmission Date: 20120928
  Serious: Yes (Death)
  Sender: FDA-Public Use
  Company Number: US-BRISTOL-MYERS SQUIBB COMPANY-16792269

PATIENT
  Age: 24 Year
  Sex: Female

DRUGS (5)
  1. TRAZODONE HCL [Suspect]
     Dosage: 4.5G
  2. ALCOHOL [Suspect]
  3. BUPROPION HCL [Suspect]
     Dosage: EXTENDED RELEASE,DOSE:13.5G
  4. CLONAZEPAM [Suspect]
     Dosage: 90MG
  5. CITALOPRAM HYDROBROMIDE [Suspect]
     Dosage: 1.8G

REACTIONS (4)
  - LOSS OF CONSCIOUSNESS [None]
  - CARDIOTOXICITY [None]
  - OVERDOSE [None]
  - CONVULSION [None]
